FAERS Safety Report 23342712 (Version 1)
Quarter: 2023Q4

REPORT INFORMATION
  Report Type: Report from Study
  Country: US (occurrence: None)
  Receive Date: 20231227
  Receipt Date: 20231227
  Transmission Date: 20240109
  Serious: Yes (Other)
  Sender: FDA-Public Use
  Company Number: 2023A289695

PATIENT
  Age: 22231 Day
  Sex: Male

DRUGS (2)
  1. CALQUENCE [Suspect]
     Active Substance: ACALABRUTINIB
     Indication: Chronic lymphocytic leukaemia
     Route: 048
     Dates: start: 20231012
  2. TYLENOL [Concomitant]
     Active Substance: ACETAMINOPHEN

REACTIONS (12)
  - Asphyxia [Unknown]
  - Liver disorder [Unknown]
  - Hypophagia [Unknown]
  - Laboratory test abnormal [Unknown]
  - Immune system disorder [Unknown]
  - Brain fog [Unknown]
  - Dyspnoea [Unknown]
  - Nasopharyngitis [Unknown]
  - COVID-19 [Unknown]
  - Asthenia [Unknown]
  - Asthenia [Unknown]
  - Product use issue [Unknown]

NARRATIVE: CASE EVENT DATE: 20231217
